FAERS Safety Report 8032433-9 (Version None)
Quarter: 2011Q4

REPORT INFORMATION
  Report Type: 
  Country: None (occurrence: None)
  Receive Date: 20111223
  Receipt Date: 20111219
  Transmission Date: 20120403
  Serious: Yes (Other)
  Sender: FDA-Public Use
  Company Number: ACO_27543_2011

PATIENT
  Age: 62 Year
  Sex: Female
  Weight: 53.1 kg

DRUGS (8)
  1. LEVOTHYROXINE SODIUM [Concomitant]
  2. PROBIOTIC (BIFIDOBACTERIUM LACTIS) [Concomitant]
  3. AMANTADINE HCL [Concomitant]
  4. AMPYRA [Suspect]
     Indication: GAIT DISTURBANCE
     Dosage: 10 MG,BID,ORAL
     Route: 048
     Dates: start: 20111007, end: 20111015
  5. ZANTAC [Concomitant]
  6. EFFEXOR [Concomitant]
  7. CRESTOR [Concomitant]
  8. CLOMIPRAMINE HCL [Concomitant]

REACTIONS (8)
  - GAIT DISTURBANCE [None]
  - RASH [None]
  - HYPERHIDROSIS [None]
  - CHILLS [None]
  - CHEST DISCOMFORT [None]
  - NAUSEA [None]
  - DIZZINESS [None]
  - DYSPNOEA [None]
